FAERS Safety Report 26215753 (Version 1)
Quarter: 2025Q4

REPORT INFORMATION
  Report Type: Spontaneous
  Country: EU (occurrence: EU)
  Receive Date: 20251231
  Receipt Date: 20251231
  Transmission Date: 20260117
  Serious: Yes (Hospitalization)
  Sender: ALEXION PHARMACEUTICALS
  Company Number: None

PATIENT
  Age: 57 Year
  Sex: Female
  Weight: 66.5 kg

DRUGS (2)
  1. TICAGRELOR [Suspect]
     Active Substance: TICAGRELOR
     Dosage: 90 MG MATIN ET SOIR
     Route: 061
     Dates: start: 20251125, end: 20251204
  2. KARDEGIC [Suspect]
     Active Substance: ASPIRIN DL-LYSINE
     Indication: Antiplatelet therapy
     Route: 061
     Dates: start: 20251125

REACTIONS (2)
  - Vascular stent thrombosis [Recovered/Resolved]
  - Treatment failure [Recovered/Resolved]

NARRATIVE: CASE EVENT DATE: 20251202
